FAERS Safety Report 18897925 (Version 1)
Quarter: 2021Q1

REPORT INFORMATION
  Report Type: Spontaneous
  Country: TR (occurrence: TR)
  Receive Date: 20210216
  Receipt Date: 20210216
  Transmission Date: 20210420
  Serious: Yes (Hospitalization, Other)
  Sender: FDA-Public Use
  Company Number: TR-MICRO LABS LIMITED-ML2021-00475

PATIENT
  Age: 15 Year
  Sex: Female

DRUGS (7)
  1. PARACETAMOL/CHLORPHENIRAMINE MALEATE [Suspect]
     Active Substance: ACETAMINOPHEN\CHLORPHENIRAMINE MALEATE
     Dosage: 15 TABLETS
  2. AMOXICILLIN/CLAVULANIC ACID [Suspect]
     Active Substance: AMOXICILLIN\CLAVULANIC ACID
     Dosage: 14 TABLETS
  3. CALCIUM DOBESILATE [Suspect]
     Active Substance: CALCIUM DOBESILATE
     Dosage: 500 MG, 20 TABLETS
  4. ORNIDAZOLE (ANTIBIOTIC) FORT [Suspect]
     Active Substance: ORNIDAZOLE
     Dosage: 14 TABLETS
  5. FLURBIPROFEN. [Suspect]
     Active Substance: FLURBIPROFEN
     Dosage: 16 SUSTAINED RELEASED CAPSULES
  6. METHENAMINE HIPPURATE/ANTIBIOTIC [Suspect]
     Active Substance: METHENAMINE HIPPURATE
     Dosage: 1 MG (14 TABLETS)
  7. HYDROXYETHYLRUTOSIDE [UNSPECIFIED] [Suspect]
     Active Substance: UNSPECIFIED INGREDIENT

REACTIONS (4)
  - Altered state of consciousness [Recovering/Resolving]
  - Suicide attempt [Unknown]
  - Intentional overdose [Unknown]
  - Toxicity to various agents [Recovering/Resolving]
